FAERS Safety Report 11727123 (Version 1)
Quarter: 2015Q4

REPORT INFORMATION
  Report Type: Report from Study
  Country: US (occurrence: US)
  Receive Date: 20151112
  Receipt Date: 20151112
  Transmission Date: 20160304
  Serious: Yes (Hospitalization)
  Sender: FDA-Public Use
  Company Number: US-AMGEN-USASL2015118688

PATIENT
  Age: 62 Year
  Sex: Female

DRUGS (1)
  1. ENBREL [Suspect]
     Active Substance: ETANERCEPT
     Indication: RHEUMATOID ARTHRITIS
     Dosage: 50 MG, QWK
     Route: 065

REACTIONS (12)
  - Abdominal pain upper [Recovered/Resolved]
  - Injection site erythema [Recovered/Resolved]
  - Arthropathy [Recovered/Resolved]
  - Wheelchair user [Recovered/Resolved]
  - Amnesia [Recovered/Resolved]
  - Vein disorder [Not Recovered/Not Resolved]
  - Chondropathy [Recovered/Resolved]
  - Headache [Not Recovered/Not Resolved]
  - Fibromyalgia [Recovered/Resolved]
  - Decubitus ulcer [Recovered/Resolved]
  - Skin fissures [Recovered/Resolved]
  - Injection site pruritus [Recovered/Resolved]

NARRATIVE: CASE EVENT DATE: 2010
